FAERS Safety Report 10716290 (Version 1)
Quarter: 2015Q1

REPORT INFORMATION
  Report Type: Spontaneous
  Country: US (occurrence: None)
  Receive Date: 20150115
  Receipt Date: 20150115
  Transmission Date: 20150721
  Serious: Yes (Other)
  Sender: FDA-Public Use
  Company Number: None

PATIENT
  Age: 78 Year
  Sex: Female

DRUGS (1)
  1. AFINITOR [Suspect]
     Active Substance: EVEROLIMUS
     Indication: BREAST CANCER
     Dosage: 10MG DAILY PO?10/24 TO 12/15 (2014)
     Route: 048
     Dates: start: 20141024, end: 20141215

REACTIONS (2)
  - Stomatitis [None]
  - Fatigue [None]
